FAERS Safety Report 11443385 (Version 1)
Quarter: 2015Q3

REPORT INFORMATION
  Report Type: Spontaneous
  Country: PL (occurrence: PL)
  Receive Date: 20150901
  Receipt Date: 20150901
  Transmission Date: 20151125
  Serious: Yes (Hospitalization, Disabling)
  Sender: FDA-Public Use
  Company Number: PL-TAKEDA-2015MPI005769

PATIENT

DRUGS (1)
  1. VELCADE [Suspect]
     Active Substance: BORTEZOMIB
     Indication: PLASMA CELL MYELOMA
     Dosage: 1.3 MG, UNK
     Route: 042
     Dates: start: 20150807, end: 20150813

REACTIONS (2)
  - Catatonia [Recovering/Resolving]
  - Major depression [Recovering/Resolving]

NARRATIVE: CASE EVENT DATE: 20150815
